FAERS Safety Report 6984972-7 (Version None)
Quarter: 2010Q3

REPORT INFORMATION
  Report Type: 
  Country: None (occurrence: None)
  Receive Date: 20100915
  Receipt Date: 20100907
  Transmission Date: 20110219
  Serious: Yes (Hospitalization)
  Sender: FDA-Public Use
  Company Number: US-BAYER-201026648NA

PATIENT
  Age: 79 Year
  Sex: Female
  Weight: 64 kg

DRUGS (3)
  1. AVELOX [Suspect]
     Indication: NASOPHARYNGITIS
     Dosage: THE SINGLE TABLET WAS TAKEN WITH FOOD
     Dates: start: 20100319
  2. ONE A DAY [Concomitant]
  3. CALTRATE [Concomitant]

REACTIONS (5)
  - CARDIAC ARREST [None]
  - CHEST DISCOMFORT [None]
  - CHEST PAIN [None]
  - HYPERSENSITIVITY [None]
  - TREMOR [None]
